FAERS Safety Report 9506263 (Version 1)
Quarter: 2013Q1

REPORT INFORMATION
  Report Type: Spontaneous
  Country: US (occurrence: None)
  Receive Date: 20130301
  Receipt Date: 20130301
  Transmission Date: 20140127
  Serious: Yes (Death)
  Sender: FDA-Public Use
  Company Number: RB-41966-2012

PATIENT
  Age: 24 Month
  Sex: Female

DRUGS (1)
  1. SUBOXONE [Suspect]
     Indication: ACCIDENTAL OVERDOSE
     Route: 048
     Dates: start: 201107, end: 201107

REACTIONS (2)
  - Accidental exposure to product by child [None]
  - Toxicity to various agents [None]
